FAERS Safety Report 16191056 (Version 2)
Quarter: 2019Q2

REPORT INFORMATION
  Report Type: Spontaneous
  Country: UA (occurrence: UA)
  Receive Date: 20190412
  Receipt Date: 20190415
  Transmission Date: 20190711
  Serious: Yes (Hospitalization)
  Sender: FDA-Public Use
  Company Number: PHHY2019UA082265

PATIENT
  Age: 11 Year

DRUGS (18)
  1. FLUCONAZOLE. [Suspect]
     Active Substance: FLUCONAZOLE
     Indication: ANTIFUNGAL TREATMENT
     Dosage: 15 MG/KG, QD
     Route: 065
  2. HERPEVIR [Suspect]
     Active Substance: ACYCLOVIR
     Indication: ANTIBIOTIC THERAPY
     Dosage: 10 MG/KG, Q8H
     Route: 065
  3. DEXAZONE [Concomitant]
     Active Substance: DEXAMETHASONE
     Indication: HORMONE THERAPY
     Dosage: 0.3 MG/KG, Q6H
     Route: 065
  4. MEROPENEM. [Suspect]
     Active Substance: MEROPENEM
     Indication: ANTIBIOTIC THERAPY
     Dosage: 20 MG/KG, TID
     Route: 065
  5. DIFLUCAN [Suspect]
     Active Substance: FLUCONAZOLE
     Indication: ANTIFUNGAL TREATMENT
     Dosage: 12 MG/KG, QD
     Route: 065
  6. CIPRINOL [Suspect]
     Active Substance: CIPROFLOXACIN
     Indication: ANTIBIOTIC THERAPY
     Dosage: 15 MG/KG, QD
     Route: 065
  7. GANCICLOVIR. [Suspect]
     Active Substance: GANCICLOVIR
     Indication: ANTIBIOTIC THERAPY
     Dosage: 10 MG/KG, QD
     Route: 065
  8. DOPAMINE [Concomitant]
     Active Substance: DOPAMINE\DOPAMINE HYDROCHLORIDE
     Indication: SYMPATHOMIMETIC EFFECT
     Dosage: 5 MG/KG/MIN
     Route: 065
  9. QUAMATEL [Concomitant]
     Active Substance: FAMOTIDINE
     Indication: PROPHYLAXIS
     Dosage: 20 MG, BID
     Route: 065
  10. MANITOL [Concomitant]
     Active Substance: MANNITOL
     Indication: OEDEMA
     Route: 065
  11. DOBUTAMINE [Concomitant]
     Active Substance: DOBUTAMINE\DOBUTAMINE HYDROCHLORIDE
     Indication: SYMPATHOMIMETIC EFFECT
     Dosage: 10 MG/KG/MIN
     Route: 065
  12. ALMAGEL [Concomitant]
     Indication: PROPHYLAXIS
  13. LASIX [Concomitant]
     Active Substance: FUROSEMIDE
     Indication: OEDEMA
     Route: 065
  14. CEFTRIAXONE. [Suspect]
     Active Substance: CEFTRIAXONE
     Indication: ANTIBIOTIC THERAPY
     Dosage: 100 MG/KG, QD
     Route: 065
  15. PREDNISOLONE. [Concomitant]
     Active Substance: PREDNISOLONE
     Indication: HORMONE THERAPY
     Dosage: 10 MG/KG, QD
     Route: 065
  16. SOLU-CORTEF [Concomitant]
     Active Substance: HYDROCORTISONE SODIUM SUCCINATE
     Indication: HORMONE THERAPY
     Dosage: 25 MG, QID
     Route: 065
  17. VANCOMYCIN [Suspect]
     Active Substance: VANCOMYCIN
     Indication: ANTIBIOTIC THERAPY
     Dosage: 15 MG/KG, TID
     Route: 065
  18. CONVULEX [Concomitant]
     Indication: EPILEPSY
     Dosage: 30 MG/KG, QD
     Route: 065

REACTIONS (12)
  - Bradycardia [Unknown]
  - Cardiac arrest [Unknown]
  - Multiple organ dysfunction syndrome [Unknown]
  - Vital functions abnormal [Unknown]
  - Subacute sclerosing panencephalitis [Unknown]
  - Cardiovascular insufficiency [Unknown]
  - Hypotension [Unknown]
  - Coma [Unknown]
  - Respiratory failure [Unknown]
  - Cardiac failure [Unknown]
  - Disseminated intravascular coagulation [Unknown]
  - Adrenal insufficiency [Unknown]
